FAERS Safety Report 17161066 (Version 5)
Quarter: 2020Q3

REPORT INFORMATION
  Report Type: Report from Study
  Country: US (occurrence: US)
  Receive Date: 20191216
  Receipt Date: 20200901
  Transmission Date: 20201102
  Serious: No
  Sender: FDA-Public Use
  Company Number: NVSC2019US005967

PATIENT
  Age: 47 Year
  Sex: Male

DRUGS (2)
  1. ENTRESTO [Suspect]
     Active Substance: SACUBITRIL\VALSARTAN
     Indication: MYOCARDIAL INFARCTION
     Dosage: UNK, BID
     Route: 048
     Dates: start: 2019, end: 20200826
  2. ENTRESTO [Suspect]
     Active Substance: SACUBITRIL\VALSARTAN
     Indication: CARDIAC FAILURE

REACTIONS (5)
  - Weight decreased [Not Recovered/Not Resolved]
  - Throat clearing [Unknown]
  - Weight increased [Unknown]
  - Seasonal allergy [Unknown]
  - Cough [Unknown]

NARRATIVE: CASE EVENT DATE: 202002
